FAERS Safety Report 25213393 (Version 2)
Quarter: 2025Q2

REPORT INFORMATION
  Report Type: Spontaneous
  Country: GB (occurrence: GB)
  Receive Date: 20250418
  Receipt Date: 20250522
  Transmission Date: 20250716
  Serious: Yes (Death, Hospitalization, Other)
  Sender: MYLAN
  Company Number: None

PATIENT
  Sex: Male
  Weight: 64 kg

DRUGS (9)
  1. PREGABALIN [Suspect]
     Active Substance: PREGABALIN
     Indication: Arthralgia
     Dosage: 150 MILLIGRAM, BID (150MG BD. PFIZER, SANDWICH, CT13 9NJ)
     Dates: start: 20120125, end: 20120202
  2. FYBOGEL [Concomitant]
     Active Substance: HERBALS\PLANTAGO OVATA SEED
  3. FOLIC ACID [Concomitant]
     Active Substance: FOLIC ACID
     Dosage: 5 MILLIGRAM, QD
  4. ASCORBIC ACID [Concomitant]
     Active Substance: ASCORBIC ACID
     Dosage: 50 MILLIGRAM, QD (ONCE DAILY)
  5. GABAPENTIN [Concomitant]
     Active Substance: GABAPENTIN
     Dosage: 300 MILLIGRAM, TID
  6. Mst [Concomitant]
     Dosage: 60 MILLIGRAM, BID (EVERY 12 HOURS)
  7. OMEPRAZOLE [Concomitant]
     Active Substance: OMEPRAZOLE
     Dosage: 20 MILLIGRAM, QD
  8. VITAMIN B COMPLEX NOS [Concomitant]
     Active Substance: CYANOCOBALAMIN\PYRIDOXINE HYDROCHLORIDE\RIBOFLAVIN\SODIUM PANTOTHENATE\THIAMINE HYDROCHLORIDE\VITAMI
     Dosage: 1 DOSAGE FORM, BID (TWICE A DAY)
  9. TAMSULOSIN [Concomitant]
     Active Substance: TAMSULOSIN
     Dosage: 400 MICROGRAM, QD

REACTIONS (7)
  - Death [Fatal]
  - Pulmonary embolism [Not Recovered/Not Resolved]
  - Dyspnoea [Not Recovered/Not Resolved]
  - Velopharyngeal incompetence [Not Recovered/Not Resolved]
  - Cachexia [Unknown]
  - Respiratory failure [Unknown]
  - Off label use [Unknown]

NARRATIVE: CASE EVENT DATE: 20120125
